FAERS Safety Report 15012183 (Version 3)
Quarter: 2018Q4

REPORT INFORMATION
  Report Type: Spontaneous
  Country: US (occurrence: US)
  Receive Date: 20180614
  Receipt Date: 20181218
  Transmission Date: 20190204
  Serious: Yes (Hospitalization, Disabling, Other)
  Sender: FDA-Public Use
  Company Number: US-OTSUKA-2018_015339

PATIENT
  Sex: Female

DRUGS (3)
  1. ABILIFY [Suspect]
     Active Substance: ARIPIPRAZOLE
     Indication: INSOMNIA
  2. ABILIFY [Suspect]
     Active Substance: ARIPIPRAZOLE
     Indication: ANXIETY
     Dosage: 10 MG, QD
     Route: 065
     Dates: start: 200701
  3. ABILIFY [Suspect]
     Active Substance: ARIPIPRAZOLE
     Indication: EATING DISORDER
     Dosage: 15 MG, QD
     Route: 065
     Dates: end: 201701

REACTIONS (16)
  - Disability [Unknown]
  - Eating disorder [Recovered/Resolved]
  - Emotional distress [Unknown]
  - Compulsive sexual behaviour [Recovered/Resolved]
  - Metabolic surgery [Unknown]
  - Sexually transmitted disease [Unknown]
  - Injury [Unknown]
  - Gambling disorder [Not Recovered/Not Resolved]
  - Mental disorder [Unknown]
  - Anxiety [Unknown]
  - Pain [Unknown]
  - Condition aggravated [Unknown]
  - Economic problem [Unknown]
  - Product use in unapproved indication [Unknown]
  - Anhedonia [Unknown]
  - Compulsive shopping [Recovered/Resolved]

NARRATIVE: CASE EVENT DATE: 200710
